FAERS Safety Report 6822257-X (Version None)
Quarter: 2010Q3

REPORT INFORMATION
  Report Type: 
  Country: None (occurrence: None)
  Receive Date: 20100707
  Receipt Date: 20100707
  Transmission Date: 20110219
  Serious: Yes (Hospitalization)
  Sender: FDA-Public Use
  Company Number: None

PATIENT
  Age: 50 Year
  Sex: Female
  Weight: 74.8435 kg

DRUGS (1)
  1. HIBICLENS [Suspect]
     Indication: THERAPEUTIC SKIN CARE TOPICAL
     Dosage: UNKNOWN, 030

REACTIONS (6)
  - CHEMICAL BURN OF SKIN [None]
  - COMPARTMENT SYNDROME [None]
  - COMPLEX REGIONAL PAIN SYNDROME [None]
  - CONDITION AGGRAVATED [None]
  - OEDEMA PERIPHERAL [None]
  - PAIN [None]
